FAERS Safety Report 18769779 (Version 1)
Quarter: 2021Q1

REPORT INFORMATION
  Report Type: Spontaneous
  Country: US (occurrence: US)
  Receive Date: 20210121
  Receipt Date: 20210121
  Transmission Date: 20210419
  Serious: Yes (Other)
  Sender: FDA-Public Use
  Company Number: US-PFIZER INC-2021038000

PATIENT
  Age: 51 Year
  Sex: Female

DRUGS (1)
  1. PREGABALIN. [Suspect]
     Active Substance: PREGABALIN
     Dosage: 150 MG, 4X/DAY (TAKE 1 CAPSULE BY MOUTH FOUR TIMES A DAY)
     Route: 048

REACTIONS (6)
  - Fungal skin infection [Unknown]
  - Candida infection [Unknown]
  - Non-alcoholic steatohepatitis [Unknown]
  - Neuralgia [Unknown]
  - Depression [Unknown]
  - Anxiety [Unknown]
